FAERS Safety Report 11096695 (Version 2)
Quarter: 2015Q2

REPORT INFORMATION
  Report Type: Spontaneous
  Country: BR (occurrence: BR)
  Receive Date: 20150507
  Receipt Date: 20150513
  Transmission Date: 20150821
  Serious: Yes (Other)
  Sender: FDA-Public Use
  Company Number: BR-SA-2015SA060856

PATIENT
  Sex: Female

DRUGS (3)
  1. LANTUS [Suspect]
     Active Substance: INSULIN GLARGINE
     Route: 065
  2. GLIFAGE [Concomitant]
     Active Substance: METFORMIN HYDROCHLORIDE
     Route: 065
  3. GALVUS [Concomitant]
     Active Substance: VILDAGLIPTIN
     Route: 065

REACTIONS (6)
  - Road traffic accident [Unknown]
  - Pain in extremity [Unknown]
  - Haematoma [Unknown]
  - Off label use [Unknown]
  - Neck injury [Unknown]
  - Limb injury [Unknown]

NARRATIVE: CASE EVENT DATE: 2015
